FAERS Safety Report 15395123 (Version 1)
Quarter: 2018Q3

REPORT INFORMATION
  Report Type: Spontaneous
  Country: US (occurrence: US)
  Receive Date: 20180911
  Receipt Date: 20180911
  Transmission Date: 20181010
  Serious: Yes (Hospitalization)
  Sender: FDA-Public Use
  Company Number: None

PATIENT
  Age: 56 Year
  Sex: Female
  Weight: 95.3 kg

DRUGS (10)
  1. ALBUTEROL MDI (2 PUFFS Q6H PRN WHEEZING) [Concomitant]
  2. ACETAMINOPHEN 500 MG (2 TABS BID PRN PAIN [Concomitant]
  3. ATORVASTATIN 20 MG QPM [Concomitant]
  4. CYMBALTA 60 MG (2 CAPS QAM) [Concomitant]
  5. LANTUS (70 UNITS QAM + 50 UNITS QPM) [Concomitant]
  6. CLONIDINE 0.2 MG HS [Concomitant]
  7. INVOKANA [Suspect]
     Active Substance: CANAGLIFLOZIN
     Indication: TYPE 2 DIABETES MELLITUS
     Route: 048
     Dates: start: 20170815, end: 20180910
  8. ABILIFY 30 MG ONCE DAILY [Concomitant]
  9. IBUPROFEN 200 MG (4 TABS BID PRN) [Concomitant]
  10. LISINOPRIL 20 MG DAILY [Concomitant]

REACTIONS (3)
  - Anion gap abnormal [None]
  - Drug dose omission [None]
  - Blood glucose increased [None]

NARRATIVE: CASE EVENT DATE: 20180911
